FAERS Safety Report 4276795-7 (Version None)
Quarter: 2004Q1

REPORT INFORMATION
  Report Type: 
  Country: None (occurrence: None)
  Receive Date: 20040120
  Receipt Date: 20040112
  Transmission Date: 20041129
  Serious: Yes (Other)
  Sender: FDA-Public Use
  Company Number: 2003192213JP

PATIENT
  Age: 9 Month
  Sex: Female

DRUGS (2)
  1. CLINDAMYCIN HCL [Suspect]
     Indication: PNEUMONIA
     Dosage: IV
     Route: 042
  2. DECONGESTANTS AND ANTIALLERGICS [Concomitant]

REACTIONS (1)
  - INTERSTITIAL LUNG DISEASE [None]
